FAERS Safety Report 7372492-X (Version None)
Quarter: 2011Q1

REPORT INFORMATION
  Report Type: 
  Country: None (occurrence: None)
  Receive Date: 20110324
  Receipt Date: 20110311
  Transmission Date: 20110831
  Serious: Yes (Hospitalization)
  Sender: FDA-Public Use
  Company Number: DE-ACTELION-A-US2011-46614

PATIENT

DRUGS (1)
  1. VENTAVIS [Suspect]
     Dosage: 2.5 G, QID
     Route: 055
     Dates: start: 20081215

REACTIONS (3)
  - FLUID RETENTION [None]
  - HEART RATE IRREGULAR [None]
  - MYOCARDIAL INFARCTION [None]
